FAERS Safety Report 23793913 (Version 2)
Quarter: 2024Q2

REPORT INFORMATION
  Report Type: Spontaneous
  Country: US (occurrence: US)
  Receive Date: 20240429
  Receipt Date: 20240607
  Transmission Date: 20240716
  Serious: Yes (Hospitalization, Disabling)
  Sender: FDA-Public Use
  Company Number: US-TEVA-VS-3188749

PATIENT

DRUGS (13)
  1. WARFARIN [Suspect]
     Active Substance: WARFARIN
     Indication: Anticoagulant therapy
     Dosage: 5 MG 6 DAYS A WEEK TABLETS, BY MOUTH
     Route: 048
  2. WARFARIN [Suspect]
     Active Substance: WARFARIN
     Indication: Anticoagulant therapy
     Dosage: 7.5MG ON FRIDAY, TABLETS, BY MOUTH
     Route: 048
  3. VYNDAMAX [Suspect]
     Active Substance: TAFAMIDIS
     Indication: Cardiac amyloidosis
     Dosage: 61MG CAPSULE ONE A DAY BY MOUTH
     Route: 048
  4. CARBIDOPA\LEVODOPA [Concomitant]
     Active Substance: CARBIDOPA\LEVODOPA
     Indication: Tremor
     Dosage: 50/200MG TABLET THREE TIMES A DAY BY MOUTH
  5. CLONAZEPAM [Concomitant]
     Active Substance: CLONAZEPAM
     Indication: Sleep terror
     Dosage: 0.5MG, WHICH IS HALF A TABLET, ONCE EVERY EVENING BY?MOUTH
     Route: 048
  6. DONEPEZIL [Suspect]
     Active Substance: DONEPEZIL\DONEPEZIL HYDROCHLORIDE
     Indication: Memory impairment
     Dosage: 10MG TABLET ONCE IN THE EVENING BY MOUTH
     Route: 048
     Dates: start: 20180102
  7. ESOMEPRAZOLE [Concomitant]
     Active Substance: ESOMEPRAZOLE
     Indication: Gastrooesophageal reflux disease
     Dosage: 40MG CAPSULE ONCE IN THE MORNING BY MOUTH
     Route: 048
  8. LEVOTHYROXINE [Concomitant]
     Active Substance: LEVOTHYROXINE\LEVOTHYROXINE SODIUM
     Indication: Thyroiditis
     Dosage: 88MCG TABLET ONE IN THE MORNING BY MOUTH
     Route: 048
  9. MIDODRINE [Concomitant]
     Active Substance: MIDODRINE
     Indication: Blood pressure decreased
     Dosage: TIME INTERVAL: 0.33333333 DAYS: 10MG TABLET THREE TIMES A DAY (MORNING, AFTERNOON,?EVENING) BY MOUTH
     Route: 048
  10. POTASSIUM CHLORIDE [Concomitant]
     Active Substance: POTASSIUM CHLORIDE
     Indication: Product used for unknown indication
     Dosage: 10MEQ TABLET ONCE IN THE MORNING BY MOUTH
     Route: 048
  11. PYRIDOSTIGMINE [Concomitant]
     Active Substance: PYRIDOSTIGMINE
     Indication: Blood pressure measurement
     Dosage: 60MG TABLET , 2 IN THE MORNING, 1 AND HALF A TABLET IN THE?AFTERNOON AND EVENING BY MOUTH
     Route: 048
  12. VITAMIN D3 [Concomitant]
     Active Substance: CHOLECALCIFEROL
     Indication: Vitamin D decreased
     Dosage: 125MCG CAPSULE ONCE THE MORNING BY MOUTH
     Route: 048
  13. VITAMINS [Concomitant]
     Active Substance: VITAMINS
     Indication: Multi-vitamin deficiency
     Dosage: CENTRUM FOR SENIORS, ONE TABLET BY MOUTH
     Route: 048

REACTIONS (2)
  - Cerebrovascular accident [Not Recovered/Not Resolved]
  - International normalised ratio decreased [Unknown]

NARRATIVE: CASE EVENT DATE: 20240401
